FAERS Safety Report 19284439 (Version 6)
Quarter: 2022Q4

REPORT INFORMATION
  Report Type: Report from Study
  Country: AR (occurrence: AR)
  Receive Date: 20210521
  Receipt Date: 20221018
  Transmission Date: 20230113
  Serious: Yes (Death, Hospitalization, Other)
  Sender: FDA-Public Use
  Company Number: AR-ABBVIE-21K-007-3914955-00

PATIENT
  Age: 66 Year
  Sex: Male

DRUGS (2)
  1. HUMIRA [Suspect]
     Active Substance: ADALIMUMAB
     Indication: Rheumatoid arthritis
     Route: 058
     Dates: start: 20140331
  2. COVID-19 VACCINE [Concomitant]
     Indication: COVID-19 immunisation
     Dosage: 1 IN ONCE FIRST DOSE
     Route: 030

REACTIONS (9)
  - Pulmonary mass [Not Recovered/Not Resolved]
  - Pneumonia [Recovered/Resolved]
  - Metastases to adrenals [Not Recovered/Not Resolved]
  - Lung neoplasm malignant [Fatal]
  - Weight decreased [Recovering/Resolving]
  - Post procedural complication [Unknown]
  - Respiration abnormal [Recovering/Resolving]
  - Bradycardia [Recovered/Resolved]
  - Arrhythmia [Not Recovered/Not Resolved]

NARRATIVE: CASE EVENT DATE: 20210504
